FAERS Safety Report 7098128-3 (Version None)
Quarter: 2010Q4

REPORT INFORMATION
  Report Type: 
  Country: None (occurrence: None)
  Receive Date: 20101112
  Receipt Date: 20101029
  Transmission Date: 20110411
  Serious: Yes (Other)
  Sender: FDA-Public Use
  Company Number: PHFR2010GB05136

PATIENT
  Sex: Male

DRUGS (1)
  1. ACLASTA [Suspect]
     Dosage: UNK
     Dates: start: 20100801

REACTIONS (6)
  - CHEST PAIN [None]
  - CONDITION AGGRAVATED [None]
  - EMPHYSEMA [None]
  - IMMUNODEFICIENCY [None]
  - INFLUENZA LIKE ILLNESS [None]
  - MALAISE [None]
